FAERS Safety Report 15374394 (Version 2)
Quarter: 2018Q3

REPORT INFORMATION
  Report Type: Spontaneous
  Country: US (occurrence: US)
  Receive Date: 20180912
  Receipt Date: 20180917
  Transmission Date: 20181010
  Serious: Yes (Hospitalization)
  Sender: FDA-Public Use
  Company Number: US-FRESENIUS MEDICAL CARE RENAL THERAPIES GROUP-FMC-1809-001629

PATIENT
  Age: 81 Year
  Sex: Male
  Weight: 74.4 kg

DRUGS (11)
  1. ASPIRIN. [Concomitant]
     Active Substance: ASPIRIN
  2. METOPROLOL. [Concomitant]
     Active Substance: METOPROLOL
  3. GABAPENTIN. [Concomitant]
     Active Substance: GABAPENTIN
  4. PANTOPRAZOLE [Concomitant]
     Active Substance: PANTOPRAZOLE
  5. DOCUSATE POTASSIUM. [Concomitant]
     Active Substance: DOCUSATE POTASSIUM
  6. OXYCODONE [Concomitant]
     Active Substance: OXYCODONE
  7. DELFLEX [Suspect]
     Active Substance: CALCIUM CHLORIDE\DEXTROSE\MAGNESIUM CHLORIDE\SODIUM CHLORIDE\SODIUM LACTATE
     Indication: END STAGE RENAL DISEASE
     Route: 033
  8. ALBUTEROL. [Concomitant]
     Active Substance: ALBUTEROL
  9. CINACALCET. [Concomitant]
     Active Substance: CINACALCET
  10. ONDANSETRON [Concomitant]
     Active Substance: ONDANSETRON
  11. PROTONIX [Concomitant]
     Active Substance: PANTOPRAZOLE SODIUM

REACTIONS (1)
  - Bloody peritoneal effluent [Recovering/Resolving]

NARRATIVE: CASE EVENT DATE: 20180831
